FAERS Safety Report 9332943 (Version 1)
Quarter: 2013Q2

REPORT INFORMATION
  Report Type: Spontaneous
  Country: US (occurrence: US)
  Receive Date: 20130606
  Receipt Date: 20130606
  Transmission Date: 20140414
  Serious: Yes (Death, Other)
  Sender: FDA-Public Use
  Company Number: US-ROXANE LABORATORIES, INC.-2013-BI-15273GD

PATIENT
  Sex: Male

DRUGS (9)
  1. PREDNISONE [Suspect]
     Indication: IMMUNOSUPPRESSANT DRUG THERAPY
     Dosage: 7.5 MG
  2. PREDNISONE [Suspect]
     Indication: TRANSPLANT REJECTION
     Dosage: 20 MG
  3. PREDNISONE [Suspect]
     Dosage: SLOW TAPERING OF 20-MG DOSES
  4. RITUXIMAB [Suspect]
     Indication: TRANSPLANT REJECTION
  5. TACROLIMUS [Suspect]
     Indication: IMMUNOSUPPRESSANT DRUG THERAPY
     Dosage: 1 MG
  6. TACROLIMUS [Suspect]
     Indication: TRANSPLANT REJECTION
     Dosage: 2 MG
  7. MYCOPHENOLATE MOFETIL [Suspect]
     Indication: IMMUNOSUPPRESSANT DRUG THERAPY
     Dosage: 1500 MG
  8. MYCOPHENOLATE MOFETIL [Suspect]
     Indication: TRANSPLANT REJECTION
     Dosage: 2000 MG
  9. METHYLPREDNISOLONE [Suspect]
     Indication: TRANSPLANT REJECTION

REACTIONS (2)
  - Progressive multifocal leukoencephalopathy [Fatal]
  - Neurological decompensation [Unknown]
